FAERS Safety Report 14254069 (Version 2)
Quarter: 2017Q4

REPORT INFORMATION
  Report Type: Report from Study
  Country: CN (occurrence: CN)
  Receive Date: 20171205
  Receipt Date: 20171212
  Transmission Date: 20180321
  Serious: Yes (Hospitalization, Other)
  Sender: FDA-Public Use
  Company Number: CN-GLAXOSMITHKLINE-CN2017GSK182224

PATIENT
  Age: 60 Year
  Sex: Female
  Weight: 58.8 kg

DRUGS (6)
  1. BELIMUMAB [Suspect]
     Active Substance: BELIMUMAB
     Indication: SYSTEMIC LUPUS ERYTHEMATOSUS
     Dosage: 10 MG/KG, CYC
     Route: 042
     Dates: start: 20141231
  2. TOTAL GLUCOSIDES OF PAEONY CAPSULES [Concomitant]
     Indication: SYSTEMIC LUPUS ERYTHEMATOSUS
     Dosage: 0.6 G, BID
     Route: 048
     Dates: start: 20131020
  3. CALCIUM CARBONATE + VITAMIN D3 [Concomitant]
     Indication: MINERAL SUPPLEMENTATION
     Dosage: 0.6 G, QD
     Route: 048
     Dates: start: 20131020
  4. OMEPRAZOLE ENTERIC COATED CAPSULES [Concomitant]
     Indication: PROPHYLAXIS
     Dosage: 20 MG, QD
     Route: 048
     Dates: start: 20161203
  5. HYDROXYCHLOROQUINE SULFATE TABLETS [Concomitant]
     Indication: SYSTEMIC LUPUS ERYTHEMATOSUS
     Dosage: 0.2 G, QD
     Route: 048
     Dates: start: 20131015
  6. PLACEBO [Suspect]
     Active Substance: UNSPECIFIED INGREDIENT
     Indication: SYSTEMIC LUPUS ERYTHEMATOSUS
     Dosage: UNK, CYC
     Route: 042
     Dates: start: 20140102, end: 20141204

REACTIONS (1)
  - Thoracic vertebral fracture [Recovering/Resolving]

NARRATIVE: CASE EVENT DATE: 20171122
